FAERS Safety Report 6045337-8 (Version None)
Quarter: 2009Q1

REPORT INFORMATION
  Report Type: 
  Country: None (occurrence: None)
  Receive Date: 20090121
  Receipt Date: 20090112
  Transmission Date: 20090719
  Serious: Yes (Hospitalization, Other)
  Sender: FDA-Public Use
  Company Number: US-AMGEN-QUU328061

PATIENT
  Sex: Female

DRUGS (3)
  1. ENBREL [Suspect]
     Indication: RHEUMATOID ARTHRITIS
     Route: 058
     Dates: start: 19990105
  2. LYRICA [Concomitant]
  3. OXYGEN [Concomitant]

REACTIONS (6)
  - ACCIDENTAL OVERDOSE [None]
  - CHRONIC OBSTRUCTIVE PULMONARY DISEASE [None]
  - INJECTION SITE PRURITUS [None]
  - NEUROPATHY PERIPHERAL [None]
  - OXYGEN SUPPLEMENTATION [None]
  - PNEUMONIA [None]
